FAERS Safety Report 8785748 (Version 1)
Quarter: 2012Q4

REPORT INFORMATION
  Report Type: 
  Country: US (occurrence: US)
  Receive Date: 20120914
  Receipt Date: 20120914
  Transmission Date: 20130627
  Serious: Yes (Hospitalization)
  Sender: FDA-Public Use
  Company Number: US-GLAXOSMITHKLINE-A0899108A

PATIENT
  Age: 61 Year
  Sex: Male

DRUGS (1)
  1. AVANDIA [Suspect]
     Indication: DIABETES MELLITUS
     Dosage: 8MG Twice per day
     Route: 048
     Dates: start: 200306, end: 201003

REACTIONS (6)
  - Myocardial infarction [Not Recovered/Not Resolved]
  - Stent placement [Unknown]
  - Catheter placement [Unknown]
  - Arterial disorder [Unknown]
  - Pallor [Unknown]
  - Joint swelling [Unknown]
